FAERS Safety Report 6812915-5 (Version None)
Quarter: 2010Q3

REPORT INFORMATION
  Report Type: 
  Country: None (occurrence: None)
  Receive Date: 20100701
  Receipt Date: 20100624
  Transmission Date: 20110219
  Serious: Yes (Death)
  Sender: FDA-Public Use
  Company Number: TW-BAXTER-2010BH014272

PATIENT
  Sex: Female

DRUGS (4)
  1. DIANEAL [Suspect]
     Indication: PERITONEAL DIALYSIS
     Route: 033
     Dates: start: 20090301, end: 20100101
  2. DIANEAL [Suspect]
     Route: 033
     Dates: start: 20090301, end: 20100101
  3. EXTRANEAL [Suspect]
     Indication: PERITONEAL DIALYSIS
     Route: 033
     Dates: start: 20090301
  4. EXTRANEAL [Suspect]
     Route: 033
     Dates: start: 20090301

REACTIONS (2)
  - DIABETIC FOOT [None]
  - SEPSIS [None]
